FAERS Safety Report 18422013 (Version 2)
Quarter: 2020Q4

REPORT INFORMATION
  Report Type: Spontaneous
  Country: GB (occurrence: GB)
  Receive Date: 20201023
  Receipt Date: 20201030
  Transmission Date: 20210114
  Serious: Yes (Other)
  Sender: FDA-Public Use
  Company Number: GB-GILEAD-2020-0500569

PATIENT
  Age: 65 Year
  Sex: Male

DRUGS (5)
  1. INSULIN [Concomitant]
     Active Substance: INSULIN NOS
  2. PIOGLITAZONE. [Concomitant]
     Active Substance: PIOGLITAZONE
  3. METFORMIN [Concomitant]
     Active Substance: METFORMIN HYDROCHLORIDE
  4. ROPINIROLE. [Concomitant]
     Active Substance: ROPINIROLE
  5. ODEFSEY [Suspect]
     Active Substance: EMTRICITABINE\RILPIVIRINE HYDROCHLORIDE\TENOFOVIR ALAFENAMIDE FUMARATE
     Indication: HIV INFECTION
     Dosage: 200 MG/25 MG/25 MG QD
     Route: 048
     Dates: start: 20200303

REACTIONS (5)
  - Diarrhoea [Unknown]
  - Sleep disorder [Unknown]
  - Abdominal distension [Unknown]
  - Blood test abnormal [Unknown]
  - Diabetes mellitus [Unknown]
